FAERS Safety Report 8283538-9 (Version None)
Quarter: 2012Q2

REPORT INFORMATION
  Report Type: 
  Country: None (occurrence: None)
  Receive Date: 20120413
  Receipt Date: 20120412
  Transmission Date: 20120825
  Serious: Yes (Death, Hospitalization)
  Sender: FDA-Public Use
  Company Number: US-B.I. PHARMACEUTICALS,INC./RIDGEFIELD-2012-BP-06788BP

PATIENT
  Sex: Male

DRUGS (6)
  1. PREDNISONE TAB [Concomitant]
     Indication: CROHN'S DISEASE
     Dosage: 10 MG
     Route: 048
  2. COMBIVENT [Suspect]
     Indication: CHRONIC OBSTRUCTIVE PULMONARY DISEASE
     Route: 055
  3. METFORMIN HCL [Concomitant]
     Indication: TYPE 2 DIABETES MELLITUS
     Route: 048
  4. ADVAIR DISKUS 100/50 [Concomitant]
     Indication: CHRONIC OBSTRUCTIVE PULMONARY DISEASE
     Route: 055
  5. GLYBURIDE [Concomitant]
     Indication: TYPE 2 DIABETES MELLITUS
     Route: 048
  6. COMBIVENT [Suspect]
     Indication: ASTHMA

REACTIONS (3)
  - INTRA-ABDOMINAL HAEMORRHAGE [None]
  - SINUSITIS [None]
  - LUNG INFECTION [None]
